FAERS Safety Report 5953708-0 (Version None)
Quarter: 2008Q4

REPORT INFORMATION
  Report Type: 
  Country: None (occurrence: None)
  Receive Date: 20081031
  Receipt Date: 20080616
  Transmission Date: 20090506
  Serious: No
  Sender: FDA-Public Use
  Company Number: 2008PV035784

PATIENT
  Age: 68 Year
  Sex: Female

DRUGS (11)
  1. SYMLIN [Suspect]
     Indication: TYPE 2 DIABETES MELLITUS
     Dosage: 30 MCG; QD; SC, 30 MCG; QD; SC
     Route: 058
     Dates: start: 20080101, end: 20080101
  2. SYMLIN [Suspect]
     Indication: TYPE 2 DIABETES MELLITUS
     Dosage: 30 MCG; QD; SC, 30 MCG; QD; SC
     Route: 058
     Dates: start: 20080601, end: 20080601
  3. SYMLIN [Suspect]
  4. NOVOLOG [Concomitant]
  5. METFORMIN HCL [Concomitant]
  6. WELLBUTRIN [Concomitant]
  7. SIMVASTATIN [Concomitant]
  8. DEPAKOTE [Concomitant]
  9. LISINOPRIL [Concomitant]
  10. SYNTHROID [Concomitant]
  11. ASPIRIN [Concomitant]

REACTIONS (3)
  - INJECTION SITE HAEMATOMA [None]
  - INJECTION SITE PAIN [None]
  - NAUSEA [None]
